FAERS Safety Report 15266371 (Version 2)
Quarter: 2018Q3

REPORT INFORMATION
  Report Type: Spontaneous
  Country: JP (occurrence: JP)
  Receive Date: 20180810
  Receipt Date: 20180928
  Transmission Date: 20181010
  Serious: Yes (Other)
  Sender: FDA-Public Use
  Company Number: JP-JNJFOC-20180810706

PATIENT
  Age: 83 Year
  Sex: Female
  Weight: 54 kg

DRUGS (1)
  1. STELARA [Suspect]
     Active Substance: USTEKINUMAB
     Indication: PSORIASIS
     Dosage: 45 MG
     Route: 058
     Dates: start: 20170703, end: 20180306

REACTIONS (1)
  - Hepatic cancer recurrent [Not Recovered/Not Resolved]

NARRATIVE: CASE EVENT DATE: 20180516
